FAERS Safety Report 5403437-7 (Version None)
Quarter: 2007Q3

REPORT INFORMATION
  Report Type: 
  Country: None (occurrence: None)
  Receive Date: 20070730
  Receipt Date: 20070719
  Transmission Date: 20080115
  Serious: Yes (Death)
  Sender: FDA-Public Use
  Company Number: 2007JP003444

PATIENT
  Age: 49 Year
  Sex: Male

DRUGS (4)
  1. PROGRAF [Suspect]
     Indication: BONE MARROW TRANSPLANT
     Dates: start: 20041101
  2. FLUDARABINE (FLUDARABINE) FORMULATION UNKNOWN [Concomitant]
  3. BUSULFAN (BUSULFAN) FORMULATION UNKNOWN [Concomitant]
  4. METHOTREXATE FORMULATION UNKNOWN [Concomitant]

REACTIONS (3)
  - ACUTE MYELOID LEUKAEMIA RECURRENT [None]
  - CSF TEST ABNORMAL [None]
  - VIITH NERVE PARALYSIS [None]
